FAERS Safety Report 5135958-9 (Version None)
Quarter: 2006Q4

REPORT INFORMATION
  Report Type: 
  Country: None (occurrence: None)
  Receive Date: 20061020
  Receipt Date: 20061012
  Transmission Date: 20070319
  Serious: Yes (Other)
  Sender: FDA-Public Use
  Company Number: S06-FRA-03985-01

PATIENT
  Age: 82 Year
  Sex: Female

DRUGS (8)
  1. SEROPRAM (CITALOPRAM HYDROBROMIDE) [Suspect]
     Indication: DEPRESSION
     Dosage: 0.7 ML QD PO
     Route: 048
     Dates: start: 20060701
  2. FOSAMAX [Suspect]
     Indication: OSTEOPOROSIS
     Dosage: 70 MG QW PO
     Route: 048
     Dates: start: 20060913
  3. DAFLON (DIOSMIN) [Concomitant]
  4. NEXIUM [Concomitant]
  5. RISPERDAL [Concomitant]
  6. ATARAX [Concomitant]
  7. SANDOCAL [Concomitant]
  8. ZOLPIDEM TARTRATE [Concomitant]

REACTIONS (5)
  - AGITATION [None]
  - CONDITION AGGRAVATED [None]
  - DEPRESSION [None]
  - DRUG INTERACTION [None]
  - SOCIAL AVOIDANT BEHAVIOUR [None]
